FAERS Safety Report 25881560 (Version 1)
Quarter: 2025Q4

REPORT INFORMATION
  Report Type: Spontaneous
  Country: US (occurrence: US)
  Receive Date: 20251005
  Receipt Date: 20251005
  Transmission Date: 20260118
  Serious: No
  Sender: SANOFI AVENTIS
  Company Number: US-SA-2025SA294199

PATIENT
  Age: 57 Year
  Sex: Female

DRUGS (13)
  1. DUPIXENT [Suspect]
     Active Substance: DUPILUMAB
     Indication: Idiopathic urticaria
     Dosage: UNK UNK, 1X
     Dates: start: 20250903, end: 20250903
  2. DUPIXENT [Suspect]
     Active Substance: DUPILUMAB
     Dosage: UNK
     Dates: start: 20250918, end: 20250918
  3. DUPIXENT [Suspect]
     Active Substance: DUPILUMAB
     Dosage: 300 MG
     Route: 058
     Dates: start: 2025
  4. ZEPBOUND [Concomitant]
     Active Substance: TIRZEPATIDE
  5. EMGALITY [Concomitant]
     Active Substance: GALCANEZUMAB-GNLM
  6. BOTOX [Concomitant]
     Active Substance: ONABOTULINUMTOXINA
  7. LYRICA [Concomitant]
     Active Substance: PREGABALIN
  8. OMEPRAZOLE [Concomitant]
     Active Substance: OMEPRAZOLE
  9. ALLEGRA [Concomitant]
     Active Substance: FEXOFENADINE HYDROCHLORIDE
  10. SIROLIMUS [Concomitant]
     Active Substance: SIROLIMUS
  11. VITAMINS [Concomitant]
     Active Substance: VITAMINS
  12. HERBALS\TURMERIC [Concomitant]
     Active Substance: HERBALS\TURMERIC
  13. VITAMIN D3 [Concomitant]
     Active Substance: CHOLECALCIFEROL

REACTIONS (6)
  - Arthropathy [Unknown]
  - Eye discharge [Unknown]
  - Eyelid margin crusting [Unknown]
  - Foreign body sensation in eyes [Unknown]
  - Vision blurred [Unknown]
  - Extra dose administered [Unknown]

NARRATIVE: CASE EVENT DATE: 20250918
